FAERS Safety Report 20191815 (Version 1)
Quarter: 2021Q4

REPORT INFORMATION
  Report Type: Spontaneous
  Country: US (occurrence: US)
  Receive Date: 20211216
  Receipt Date: 20211216
  Transmission Date: 20220304
  Serious: Yes (Hospitalization)
  Sender: FDA-Public Use
  Company Number: US-JNJFOC-20211214116

PATIENT
  Age: 22 Year
  Sex: Male
  Weight: 80 kg

DRUGS (3)
  1. ACETAMINOPHEN [Suspect]
     Active Substance: ACETAMINOPHEN
     Indication: Neck pain
     Dosage: ACETAMINOPHEN AT A DOSE OF 1000 MG EVERY 2-3 HOURS FOR 2 DAYS (TOTAL DOSE OF APPROXIMATELY 15 GMS)
     Route: 048
     Dates: start: 20031112, end: 20031114
  2. IBUPROFEN [Suspect]
     Active Substance: IBUPROFEN
     Indication: Neck pain
     Dosage: IBUPROFEN AT A DOSE OF 600 MG EVERY 6 HOURS FOR 2 DAYS
     Route: 048
     Dates: start: 20031112, end: 20031114
  3. LEXAPRO [Concomitant]
     Active Substance: ESCITALOPRAM OXALATE
     Indication: Product used for unknown indication
     Dosage: DOSE OF 20 MG DAILY FOR 6 MONTHS
     Route: 048
     Dates: end: 20031114

REACTIONS (3)
  - Acute hepatic failure [Recovered/Resolved]
  - Acute kidney injury [Unknown]
  - Accidental overdose [Recovered/Resolved]
